FAERS Safety Report 12849190 (Version 2)
Quarter: 2016Q4

REPORT INFORMATION
  Report Type: Report from Study
  Country: None (occurrence: CO)
  Receive Date: 20161014
  Receipt Date: 20161109
  Transmission Date: 20170207
  Serious: Yes (Hospitalization, Other)
  Sender: FDA-Public Use
  Company Number: CO-ABBVIE-16K-036-1752060-00

PATIENT
  Age: 72 Year
  Sex: Male
  Weight: 64 kg

DRUGS (2)
  1. HUMIRA [Suspect]
     Active Substance: ADALIMUMAB
     Indication: PSORIASIS
     Route: 058
     Dates: start: 20100715, end: 20160928
  2. LOSARTAN. [Concomitant]
     Active Substance: LOSARTAN
     Indication: PRODUCT USED FOR UNKNOWN INDICATION

REACTIONS (9)
  - Hepatic lesion [Recovering/Resolving]
  - Faeces soft [Recovering/Resolving]
  - Gastrointestinal haemorrhage [Recovering/Resolving]
  - Frequent bowel movements [Recovering/Resolving]
  - Testicular pain [Recovering/Resolving]
  - Diverticulum [Recovering/Resolving]
  - Dyspnoea [Recovering/Resolving]
  - Clear cell renal cell carcinoma [Recovering/Resolving]
  - Fatigue [Recovering/Resolving]

NARRATIVE: CASE EVENT DATE: 201501
